FAERS Safety Report 5007860-4 (Version None)
Quarter: 2006Q2

REPORT INFORMATION
  Report Type: 
  Country: None (occurrence: None)
  Receive Date: 20060403
  Receipt Date: 20051110
  Transmission Date: 20061013
  Serious: Yes (Hospitalization)
  Sender: FDA-Public Use
  Company Number: 2005EN000454

PATIENT
  Age: 11 Year
  Sex: Female

DRUGS (1)
  1. ONCASPAR [Suspect]
     Dosage: X1
     Dates: start: 20051107, end: 20051107

REACTIONS (3)
  - RASH GENERALISED [None]
  - RASH PRURITIC [None]
  - THROAT TIGHTNESS [None]
